FAERS Safety Report 26192644 (Version 1)
Quarter: 2025Q4

REPORT INFORMATION
  Report Type: Spontaneous
  Country: US (occurrence: US)
  Receive Date: 20251223
  Receipt Date: 20251223
  Transmission Date: 20260118
  Serious: No
  Sender: SANOFI AVENTIS
  Company Number: US-SA-2025SA382850

PATIENT
  Age: 59 Year
  Sex: Female

DRUGS (19)
  1. DUPIXENT [Suspect]
     Active Substance: DUPILUMAB
     Indication: Neurodermatitis
     Dosage: 300 MG, QOW
     Route: 058
     Dates: start: 20251110
  2. AMLODIPINE [Concomitant]
     Active Substance: AMLODIPINE BESYLATE
  3. ARIPIPRAZOLE [Concomitant]
     Active Substance: ARIPIPRAZOLE
  4. ARMOUR THYROID [Concomitant]
     Active Substance: THYROID, PORCINE
  5. BUPROPION HYDROCHLORIDE [Concomitant]
     Active Substance: BUPROPION HYDROCHLORIDE
  6. BUSPIRONE HCL [Concomitant]
     Active Substance: BUSPIRONE HYDROCHLORIDE
  7. CARVEDILOL [Concomitant]
     Active Substance: CARVEDILOL
  8. CETIRIZINE HYDROCHLORIDE [Concomitant]
     Active Substance: CETIRIZINE HYDROCHLORIDE
  9. CIMETIDINE [Concomitant]
     Active Substance: CIMETIDINE
  10. TELMISARTAN [Concomitant]
     Active Substance: TELMISARTAN
  11. PROCHLORPERAZINE MALEATE [Concomitant]
     Active Substance: PROCHLORPERAZINE MALEATE
  12. MONTELUKAST [Concomitant]
     Active Substance: MONTELUKAST
  13. LEVOCETIRIZINE DIHYDROCHLORIDE [Concomitant]
     Active Substance: LEVOCETIRIZINE DIHYDROCHLORIDE
  14. HYDROXYZINE [Concomitant]
     Active Substance: HYDROXYZINE HYDROCHLORIDE
  15. HYDROCHLOROTHIAZIDE [Concomitant]
     Active Substance: HYDROCHLOROTHIAZIDE
  16. FAMOTIDINE [Concomitant]
     Active Substance: FAMOTIDINE
  17. ESTRADIOL [Concomitant]
     Active Substance: ESTRADIOL
  18. ESOMEPRAZOLE [Concomitant]
     Active Substance: ESOMEPRAZOLE
  19. DIPHENOXYLATE [Concomitant]
     Active Substance: DIPHENOXYLATE

REACTIONS (2)
  - Anorectal operation [Unknown]
  - Neurodermatitis [Not Recovered/Not Resolved]

NARRATIVE: CASE EVENT DATE: 20250101
